FAERS Safety Report 6546784-8 (Version None)
Quarter: 2010Q1

REPORT INFORMATION
  Report Type: 
  Country: None (occurrence: None)
  Receive Date: 20100119
  Receipt Date: 20100104
  Transmission Date: 20100710
  Serious: Yes (Death, Hospitalization)
  Sender: FDA-Public Use
  Company Number: 2010AC000005

PATIENT
  Age: 58 Year
  Sex: Male

DRUGS (19)
  1. DIGOXIN [Suspect]
     Dosage: 0.125 MG; QD; PO
     Route: 048
     Dates: start: 20060801
  2. COREG [Concomitant]
  3. POTASSIUM [Concomitant]
  4. LASIX [Concomitant]
  5. CAPTOPRIL [Concomitant]
  6. ZOCOR [Concomitant]
  7. GLYBURIDE [Concomitant]
  8. AVANDIA [Concomitant]
  9. COUMADIN [Concomitant]
  10. ACTOS [Concomitant]
  11. METFORMIN [Concomitant]
  12. FUROSEMIDE [Concomitant]
  13. POTASSIUM CHLORIDE [Concomitant]
  14. PROAIR HFA [Concomitant]
  15. ZYRTEC [Concomitant]
  16. METOLAZONE [Concomitant]
  17. FUROSEMIDE [Concomitant]
  18. EPINEPHRINE [Concomitant]
  19. ATROPINE [Concomitant]

REACTIONS (19)
  - ANXIETY [None]
  - ARRHYTHMIA [None]
  - ATRIOVENTRICULAR BLOCK FIRST DEGREE [None]
  - BLOOD TRIGLYCERIDES INCREASED [None]
  - CARDIOMEGALY [None]
  - CONDUCTION DISORDER [None]
  - CONGESTIVE CARDIOMYOPATHY [None]
  - DIZZINESS [None]
  - DYSLIPIDAEMIA [None]
  - ECONOMIC PROBLEM [None]
  - EJECTION FRACTION DECREASED [None]
  - MITRAL VALVE INCOMPETENCE [None]
  - MULTIPLE INJURIES [None]
  - OEDEMA PERIPHERAL [None]
  - PAIN [None]
  - PULMONARY VALVE INCOMPETENCE [None]
  - SYNCOPE [None]
  - TRICUSPID VALVE INCOMPETENCE [None]
  - TYPE 2 DIABETES MELLITUS [None]
